FAERS Safety Report 6789099-5 (Version None)
Quarter: 2010Q2

REPORT INFORMATION
  Report Type: 
  Country: None (occurrence: None)
  Receive Date: 20100623
  Receipt Date: 20080714
  Transmission Date: 20101027
  Serious: Yes (Other)
  Sender: FDA-Public Use
  Company Number: US-PFIZER INC-2008048892

PATIENT
  Sex: Male

DRUGS (5)
  1. GEODON [Suspect]
     Indication: SLEEP DISORDER
     Dates: start: 20080501, end: 20080501
  2. PEGASYS [Suspect]
     Indication: HEPATITIS C VIRUS TEST
     Dates: start: 20080401
  3. RIBAVIRIN [Suspect]
     Indication: HEPATITIS C VIRUS TEST
     Dates: start: 20080401
  4. LEXAPRO [Concomitant]
     Dates: start: 20080315
  5. SEROQUEL [Concomitant]
     Dates: end: 20080501

REACTIONS (2)
  - DYSTONIA [None]
  - VOMITING [None]
